FAERS Safety Report 18545305 (Version 1)
Quarter: 2020Q4

REPORT INFORMATION
  Report Type: Report from Study
  Country: None (occurrence: BR)
  Receive Date: 20201125
  Receipt Date: 20201125
  Transmission Date: 20210114
  Serious: Yes (Hospitalization)
  Sender: FDA-Public Use
  Company Number: BR-ABBVIE-20P-020-3665014-00

PATIENT
  Sex: Female
  Weight: 62 kg

DRUGS (5)
  1. CENTRUM MULHER [Concomitant]
     Active Substance: VITAMINS
     Indication: PRODUCT USED FOR UNKNOWN INDICATION
  2. SYNTHROID [Suspect]
     Active Substance: LEVOTHYROXINE SODIUM
     Indication: THYROID DISORDER
     Dosage: STARTED TREATMENT WITH 25MCG; DOSE INCREASED.
     Route: 048
  3. SYNTHROID [Suspect]
     Active Substance: LEVOTHYROXINE SODIUM
     Dosage: FORM STRENGTH 50MCG; DOSE INCREASED.
     Route: 048
  4. CENTRUM MULHER [Concomitant]
     Active Substance: VITAMINS
     Indication: POSTOPERATIVE CARE
     Dosage: ONGOING; TREATMENT WILL LAST HER ENTIRE LIFE; DAILY DOSE: 1 TABLET.
     Route: 048
     Dates: start: 201802
  5. SYNTHROID [Suspect]
     Active Substance: LEVOTHYROXINE SODIUM
     Dosage: ADMINISTERED WHEN WAKING UP DURING FASTING, FORM STRENGTH 75MCG; ONGOING.
     Route: 048

REACTIONS (6)
  - Thrombosis [Unknown]
  - Blood glucose abnormal [Unknown]
  - Obesity [Unknown]
  - Vitamin D deficiency [Unknown]
  - Hormone level abnormal [Unknown]
  - Hepatic steatosis [Unknown]

NARRATIVE: CASE EVENT DATE: 201802
